FAERS Safety Report 14577917 (Version 2)
Quarter: 2019Q1

REPORT INFORMATION
  Report Type: Spontaneous
  Country: TH (occurrence: TH)
  Receive Date: 20180227
  Receipt Date: 20190222
  Transmission Date: 20190417
  Serious: Yes (Death, Other)
  Sender: FDA-Public Use
  Company Number: TH-ASTRAZENECA-2018SE24287

PATIENT
  Age: 73 Year
  Sex: Male

DRUGS (2)
  1. BRILINTA [Suspect]
     Active Substance: TICAGRELOR
     Indication: ACUTE MYOCARDIAL INFARCTION
     Dosage: 180.0MG UNKNOWN
     Route: 048
     Dates: start: 20180217, end: 20180217
  2. ASPIRIN. [Concomitant]
     Active Substance: ASPIRIN
     Dosage: 325 MG

REACTIONS (4)
  - Cardiac arrest [Fatal]
  - Dyspnoea [Unknown]
  - Rash erythematous [Unknown]
  - Angioedema [Fatal]

NARRATIVE: CASE EVENT DATE: 20180217
